FAERS Safety Report 16451327 (Version 1)
Quarter: 2019Q2

REPORT INFORMATION
  Report Type: Report from Study
  Country: IL (occurrence: IL)
  Receive Date: 20190619
  Receipt Date: 20190619
  Transmission Date: 20190711
  Serious: Yes (Life-Threatening)
  Sender: FDA-Public Use
  Company Number: IL-RECRO GAINESVILLE LLC-REPH-2019-000098

PATIENT
  Age: 6 Week
  Sex: Male
  Weight: 3.8 kg

DRUGS (7)
  1. VERAPAMIL HYDROCHLORIDE SUSTAINED RELEASE [Suspect]
     Active Substance: VERAPAMIL HYDROCHLORIDE
     Indication: SUPRAVENTRICULAR TACHYCARDIA
     Dosage: 1 MILLIGRAM, ONE TIME DOSE
     Route: 042
  2. VERAPAMIL HYDROCHLORIDE SUSTAINED RELEASE [Suspect]
     Active Substance: VERAPAMIL HYDROCHLORIDE
     Dosage: 1 MILLIGRAM, ONE TIME DOSE
     Route: 042
  3. VERAPAMIL HYDROCHLORIDE SUSTAINED RELEASE [Suspect]
     Active Substance: VERAPAMIL HYDROCHLORIDE
     Dosage: 1 MILLIGRAM, ONE TIME DOSE
     Route: 042
  4. DIGOXIN. [Concomitant]
     Active Substance: DIGOXIN
     Indication: SUPRAVENTRICULAR TACHYCARDIA
     Dosage: UNK
     Route: 042
  5. CALCIUM GLUCONATED [Concomitant]
     Indication: PROPHYLAXIS
     Dosage: 3 MILLILITER, ONE TIME DOSE
     Route: 042
  6. CALCIUM GLUCONATED [Concomitant]
     Dosage: 3 MILLILITER, ONE TIME DOSE
     Route: 042
  7. VERAPAMIL HYDROCHLORIDE SUSTAINED RELEASE [Suspect]
     Active Substance: VERAPAMIL HYDROCHLORIDE
     Dosage: 1 MILLIGRAM, ONE TIME DOSE
     Route: 042

REACTIONS (5)
  - Wolff-Parkinson-White syndrome [Recovered/Resolved]
  - Cardio-respiratory arrest [Recovered/Resolved]
  - Bradycardia [Recovered/Resolved]
  - Cardiac arrest [Recovered/Resolved]
  - Off label use [Recovered/Resolved]
